FAERS Safety Report 15276027 (Version 1)
Quarter: 2018Q3

REPORT INFORMATION
  Report Type: Report from Study
  Country: US (occurrence: US)
  Receive Date: 20180814
  Receipt Date: 20180814
  Transmission Date: 20181010
  Serious: Yes (Hospitalization, Other)
  Sender: FDA-Public Use
  Company Number: US-PFIZER INC-2018194003

PATIENT
  Age: 72 Year
  Sex: Male

DRUGS (3)
  1. SUTENT [Suspect]
     Active Substance: SUNITINIB MALATE
     Dosage: 50 MG, CYCLIC (DAILY FOR 14 DAYS ON AND 7 DAYS OFF, EVENING TIME)
     Route: 048
  2. SUTENT [Suspect]
     Active Substance: SUNITINIB MALATE
     Indication: RENAL CELL CARCINOMA
     Dosage: 50 MG, CYCLIC (DAILY 2 WEEKS ON, 1 WEEK OFF.)
     Route: 048
     Dates: start: 20180427
  3. SUTENT [Suspect]
     Active Substance: SUNITINIB MALATE
     Dosage: 50 MG, ONCE DAILY
     Route: 048
     Dates: start: 20180427

REACTIONS (12)
  - Chest pain [Unknown]
  - White blood cell count decreased [Unknown]
  - Thrombocytopenia [Recovered/Resolved]
  - Neck pain [Unknown]
  - Diarrhoea [Unknown]
  - Hypotension [Unknown]
  - Weight decreased [Unknown]
  - Dehydration [Unknown]
  - Fatigue [Unknown]
  - Mucosal inflammation [Recovering/Resolving]
  - Nausea [Not Recovered/Not Resolved]
  - Erythema [Unknown]

NARRATIVE: CASE EVENT DATE: 2018
